FAERS Safety Report 9982608 (Version 1)
Quarter: 2014Q1

REPORT INFORMATION
  Report Type: Report from Study
  Country: US (occurrence: US)
  Receive Date: 20140307
  Receipt Date: 20140307
  Transmission Date: 20141002
  Serious: No
  Sender: FDA-Public Use
  Company Number: US-ABBVIE-13P-163-1180900-00

PATIENT
  Age: 51 Year
  Sex: Female

DRUGS (11)
  1. HUMIRA [Suspect]
     Indication: RHEUMATOID ARTHRITIS
     Dates: start: 20131212
  2. LISINOPRIL [Concomitant]
     Indication: HYPERTENSION
  3. METFORMIN [Concomitant]
     Indication: DIABETES MELLITUS
  4. PERCOCET [Concomitant]
     Indication: ARTHRALGIA
     Dosage: 10/325
  5. MORPHINE [Concomitant]
     Indication: ARTHRALGIA
  6. XANAX [Concomitant]
     Indication: ANXIETY
  7. NORTRIPTYLINE [Concomitant]
     Indication: DEPRESSION
  8. CELEBREX [Concomitant]
     Indication: DEPRESSION
  9. MULTIVITAMIN [Concomitant]
     Indication: VITAMIN SUPPLEMENTATION
     Dosage: DAILY
  10. PROTONIX [Concomitant]
     Indication: GASTROOESOPHAGEAL REFLUX DISEASE
  11. ASA [Concomitant]
     Indication: PRODUCT USED FOR UNKNOWN INDICATION

REACTIONS (5)
  - Rhinorrhoea [Recovering/Resolving]
  - Injection site bruising [Recovering/Resolving]
  - Nausea [Recovered/Resolved]
  - Vomiting [Recovered/Resolved]
  - Diarrhoea [Recovered/Resolved]
